FAERS Safety Report 16535445 (Version 2)
Quarter: 2019Q3

REPORT INFORMATION
  Report Type: Spontaneous
  Country: US (occurrence: US)
  Receive Date: 20190705
  Receipt Date: 20190814
  Transmission Date: 20191004
  Serious: Yes (Other)
  Sender: FDA-Public Use
  Company Number: US-GW PHARMA-201907USGW2260

PATIENT

DRUGS (5)
  1. APTIOM [Concomitant]
     Active Substance: ESLICARBAZEPINE ACETATE
     Indication: SEIZURE
     Dosage: UNKNOWN
     Route: 065
  2. ONFI [Suspect]
     Active Substance: CLOBAZAM
     Indication: EPILEPSY
     Dosage: 30 MILLIGRAM, BID
     Route: 065
  3. EPIDIOLEX [Suspect]
     Active Substance: CANNABIDIOL
     Indication: SEIZURE
  4. ONFI [Suspect]
     Active Substance: CLOBAZAM
     Dosage: 52 MILLIGRAM, QD (25 MG MANE AND 27 MG AT NIGHT)
     Route: 065
     Dates: start: 201907
  5. EPIDIOLEX [Suspect]
     Active Substance: CANNABIDIOL
     Indication: EPILEPSY
     Dosage: 500 MILLIGRAM, BID
     Route: 048
     Dates: start: 20190401

REACTIONS (8)
  - Anxiety [Unknown]
  - Depression [Recovered/Resolved]
  - Diarrhoea [Unknown]
  - Aura [Unknown]
  - Mood altered [Recovered/Resolved]
  - Hallucination, auditory [Unknown]
  - Fatigue [Unknown]
  - Suicidal ideation [Recovered/Resolved]

NARRATIVE: CASE EVENT DATE: 201906
